FAERS Safety Report 5798973-8 (Version None)
Quarter: 2008Q3

REPORT INFORMATION
  Report Type: 
  Country: None (occurrence: None)
  Receive Date: 20080701
  Receipt Date: 20080616
  Transmission Date: 20090109
  Serious: Yes (Death)
  Sender: FDA-Public Use
  Company Number: 2008S1008202

PATIENT
  Age: 1 Year
  Sex: Male

DRUGS (1)
  1. FENTANYL TRANSDERMAL SYSTEM [Suspect]
     Dosage: 150 UG; EVERY HOUR; TRANSDERMAL
     Route: 062
     Dates: start: 20080428, end: 20080428

REACTIONS (6)
  - BURNS SECOND DEGREE [None]
  - BURNS THIRD DEGREE [None]
  - CONTUSION [None]
  - OVERDOSE [None]
  - VICTIM OF CHILD ABUSE [None]
  - WRONG DRUG ADMINISTERED [None]
